FAERS Safety Report 4420622-1 (Version None)
Quarter: 2004Q2

REPORT INFORMATION
  Report Type: 
  Country: None (occurrence: None)
  Receive Date: 20040618
  Receipt Date: 20030926
  Transmission Date: 20050107
  Serious: Yes (Other)
  Sender: FDA-Public Use
  Company Number: US-SHR-03-011926

PATIENT
  Age: 78 Year
  Sex: Male

DRUGS (10)
  1. FLUDARA [Suspect]
     Indication: CHRONIC LYMPHOCYTIC LEUKAEMIA
     Dosage: SEE IMAGE
     Route: 042
     Dates: start: 20030715, end: 20030812
  2. FLUDARA [Suspect]
     Indication: CHRONIC LYMPHOCYTIC LEUKAEMIA
     Dosage: SEE IMAGE
     Route: 042
     Dates: start: 20030819
  3. DEXAMETHASONE [Concomitant]
  4. ALLOPURINOL [Concomitant]
  5. IMODIUM [Concomitant]
  6. MAG-OX (MAGNESIUM OXIDE) [Concomitant]
  7. QUESTRAN [Concomitant]
  8. CALCIUM (CALCIUM) [Concomitant]
  9. CENTRUM (SILVER) (MINERALS NOS, VITAMINS NOS) [Concomitant]
  10. RESTORIL [Concomitant]

REACTIONS (2)
  - NEUTROPHIL COUNT DECREASED [None]
  - PLATELET COUNT DECREASED [None]
